FAERS Safety Report 9569498 (Version 2)
Quarter: 2013Q3

REPORT INFORMATION
  Report Type: Spontaneous
  Country: US (occurrence: US)
  Receive Date: 20130930
  Receipt Date: 20130930
  Transmission Date: 20140515
  Serious: No
  Sender: FDA-Public Use
  Company Number: US-AMGEN-USASP2013051683

PATIENT
  Age: 33 Year
  Sex: Female
  Weight: 81.63 kg

DRUGS (4)
  1. ENBREL [Suspect]
     Indication: PSORIASIS
     Dosage: UNK
     Route: 065
     Dates: start: 20080101, end: 20080901
  2. HUMIRA [Concomitant]
     Dosage: UNK
  3. CLARITIN                           /00917501/ [Concomitant]
     Dosage: UNK
  4. VYVANSE [Concomitant]
     Dosage: UNK

REACTIONS (1)
  - Drug ineffective [Unknown]
